FAERS Safety Report 18685277 (Version 1)
Quarter: 2020Q4

REPORT INFORMATION
  Report Type: Other
  Country: CA (occurrence: CA)
  Receive Date: 20201231
  Receipt Date: 20201231
  Transmission Date: 20210114
  Serious: No
  Sender: FDA-Public Use
  Company Number: CA-LUPIN PHARMACEUTICALS INC.-2020-06347

PATIENT
  Age: 7 Year
  Sex: Female

DRUGS (2)
  1. CEPHALEXIN. [Suspect]
     Active Substance: CEPHALEXIN
     Indication: LOCALISED INFECTION
     Dosage: UNK UNK, QID
     Route: 048
  2. CEPHALEXIN. [Suspect]
     Active Substance: CEPHALEXIN
     Indication: IMPLANT SITE INFECTION

REACTIONS (6)
  - Ocular hyperaemia [Unknown]
  - Condition aggravated [Unknown]
  - Eye irritation [Unknown]
  - Eye swelling [Unknown]
  - Eye pruritus [Unknown]
  - No reaction on previous exposure to drug [Unknown]
